FAERS Safety Report 4869257-7 (Version None)
Quarter: 2005Q4

REPORT INFORMATION
  Report Type: 
  Country: None (occurrence: None)
  Receive Date: 20051230
  Receipt Date: 20051222
  Transmission Date: 20060501
  Serious: Yes (Other)
  Sender: FDA-Public Use
  Company Number: DE-JNJFOC-20051104546

PATIENT
  Sex: Female
  Weight: 57 kg

DRUGS (2)
  1. GYNO-PEVARYL [Suspect]
     Route: 065
     Dates: start: 20051108, end: 20051111
  2. GYNO-PEVARYL [Suspect]
     Route: 065

REACTIONS (1)
  - POST PROCEDURAL COMPLICATION [None]
